FAERS Safety Report 5231843-2 (Version None)
Quarter: 2007Q1

REPORT INFORMATION
  Report Type: 
  Country: None (occurrence: None)
  Receive Date: 20070206
  Receipt Date: 20070124
  Transmission Date: 20070707
  Serious: Yes (Other)
  Sender: FDA-Public Use
  Company Number: US-MERCK-0612USA03117

PATIENT
  Age: 54 Year
  Sex: Female

DRUGS (10)
  1. MAXALT [Suspect]
     Indication: MIGRAINE
     Route: 048
     Dates: start: 20020101
  2. CLONAZEPAM [Concomitant]
     Route: 065
  3. MELOXICAM [Concomitant]
     Route: 065
  4. PREMARIN [Concomitant]
     Route: 065
  5. MEDENT [Concomitant]
     Route: 065
  6. FLONASE [Concomitant]
     Route: 065
  7. SKELAXIN [Concomitant]
     Route: 065
  8. AMBIEN [Concomitant]
     Route: 065
  9. NEURONTIN [Concomitant]
     Route: 065
  10. LEVAQUIN [Suspect]
     Route: 065

REACTIONS (1)
  - DRUG HYPERSENSITIVITY [None]
